FAERS Safety Report 5709751-X (Version None)
Quarter: 2008Q2

REPORT INFORMATION
  Report Type: 
  Country: None (occurrence: None)
  Receive Date: 20080418
  Receipt Date: 20080410
  Transmission Date: 20081010
  Serious: Yes (Hospitalization)
  Sender: FDA-Public Use
  Company Number: US-ABBOTT-03P-163-0237909-00

PATIENT
  Sex: Male
  Weight: 80 kg

DRUGS (21)
  1. HUMIRA [Suspect]
     Indication: CROHN'S DISEASE
     Route: 058
     Dates: start: 20021119, end: 20031010
  2. PENTASA [Concomitant]
     Indication: CROHN'S DISEASE
     Dates: start: 20020101
  3. MERCAPTOPURINE [Concomitant]
     Indication: CROHN'S DISEASE
     Dates: start: 20020101, end: 20030818
  4. LANSOPRAZOLE [Concomitant]
     Indication: OESOPHAGITIS
     Dates: start: 19961201
  5. CYANOCOBALAMIN [Concomitant]
     Indication: PERNICIOUS ANAEMIA
     Dosage: 1000 MG
     Dates: start: 19981201
  6. ASCORBIC ACID [Concomitant]
     Indication: PERNICIOUS ANAEMIA
     Dates: start: 19981213
  7. TRAMADOL HCL [Concomitant]
     Indication: JOINT EFFUSION
     Dates: start: 20021217, end: 20030301
  8. TRAMADOL HCL [Concomitant]
     Indication: INJURY
  9. IRON DEXTRAN [Concomitant]
     Indication: IRON DEFICIENCY ANAEMIA
     Dates: start: 20030219, end: 20030219
  10. IRON DEXTRAN [Concomitant]
     Dates: start: 20030502, end: 20030502
  11. IRON DEXTRAN [Concomitant]
     Dates: start: 20030811, end: 20030811
  12. IRON [Concomitant]
     Indication: IRON DEFICIENCY ANAEMIA
     Dates: start: 20030711, end: 20030711
  13. IRON [Concomitant]
     Dates: start: 20030725, end: 20030725
  14. CEFUROXIME AXETIL [Concomitant]
     Indication: NOCARDIOSIS
     Dates: start: 20030924, end: 20030926
  15. AMOXICILLIN + CLAVULANATE POTASSIUM [Concomitant]
     Indication: NOCARDIOSIS
     Dates: start: 20030926
  16. LEVOFLOXACIN [Concomitant]
     Indication: NOCARDIOSIS
     Dates: start: 20030926
  17. SPORANOX [Concomitant]
     Indication: NOCARDIOSIS
     Dates: start: 20030926
  18. PROBIOTICA [Concomitant]
     Indication: DIARRHOEA
     Dates: start: 20030926, end: 20031019
  19. EPOGEN [Concomitant]
     Indication: IRON DEFICIENCY ANAEMIA
     Route: 050
     Dates: start: 20030905, end: 20031020
  20. BACTRIM [Concomitant]
     Indication: NOCARDIOSIS
     Dates: start: 20030929, end: 20031016
  21. MERCAPTOPURINE [Concomitant]
     Dates: start: 20030922, end: 20031020

REACTIONS (2)
  - NOCARDIOSIS [None]
  - PARVOVIRUS INFECTION [None]
